FAERS Safety Report 4579136-0 (Version None)
Quarter: 2005Q1

REPORT INFORMATION
  Report Type: 
  Country: None (occurrence: None)
  Receive Date: 20050121
  Receipt Date: 20040616
  Transmission Date: 20050727
  Serious: Yes (Hospitalization)
  Sender: FDA-Public Use
  Company Number: STA-AE-04-MTX-269

PATIENT
  Age: 77 Year
  Sex: Male

DRUGS (16)
  1. METHOTREXATE [Suspect]
     Indication: RHEUMATOID ARTHRITIS
     Dosage: 13 MG 1X PER 1 WK
     Dates: start: 20001213, end: 20010131
  2. METHOTREXATE [Suspect]
     Indication: RHEUMATOID ARTHRITIS
     Dosage: 10 MG 1X PER 1 WK
     Dates: start: 20010201, end: 20010914
  3. ENBREL [Suspect]
     Indication: RHEUMATOID ARTHRITIS
     Dosage: 25 MG 2X PER 1 WK, SC
     Route: 058
     Dates: start: 20010612, end: 20011126
  4. ANAKINRA (ANAKINRA) [Suspect]
     Indication: RHEUMATOID ARTHRITIS
     Dosage: 100 MG 1X PER 1 DAY, SC
     Route: 058
     Dates: start: 20010612, end: 20011126
  5. PREDNISONE [Suspect]
     Indication: RHEUMATOID ARTHRITIS
     Dosage: 5 MG 1X PER 1 DAY
     Dates: start: 20001122, end: 20001221
  6. PREDNISONE [Suspect]
     Indication: RHEUMATOID ARTHRITIS
     Dosage: 10 MG 1X PER 1 DAY
     Dates: start: 20001222
  7. ACETYLSALICYLIC ACID SRT [Concomitant]
  8. CAPTOPRIL [Concomitant]
  9. LASIX [Concomitant]
  10. ISOSORBIDE DINITRATE ^SDTADA^ [Concomitant]
  11. SYNTHROID ILEVOTHYROXINE SODIUM) [Concomitant]
  12. METOPROLOL TARTRATE [Concomitant]
  13. K-DUR 10 [Concomitant]
  14. ARAVA [Concomitant]
  15. FOLIC AICD(FOLIC ACID) [Concomitant]
  16. CHOLESTYRAMINE RESIN (CHOLESTYRAMINNE) [Concomitant]

REACTIONS (1)
  - HERPES ZOSTER [None]
